FAERS Safety Report 18715947 (Version 1)
Quarter: 2021Q1

REPORT INFORMATION
  Report Type: Spontaneous
  Country: US (occurrence: US)
  Receive Date: 20210107
  Receipt Date: 20210107
  Transmission Date: 20210419
  Serious: Yes (Other)
  Sender: FDA-Public Use
  Company Number: None

PATIENT
  Age: 70 Year
  Sex: Male
  Weight: 76.4 kg

DRUGS (1)
  1. CHLORHEXIDINE GLUCONATE ORAL RINSE 0.12% [Suspect]
     Active Substance: CHLORHEXIDINE GLUCONATE
     Indication: OROPHARYNGEAL DISCOMFORT
     Route: 002
     Dates: start: 20201006, end: 20201117

REACTIONS (4)
  - Dyspnoea [None]
  - Infection [None]
  - Product contamination microbial [None]
  - COVID-19 [None]

NARRATIVE: CASE EVENT DATE: 20201109
